FAERS Safety Report 9288456 (Version 1)
Quarter: 2013Q2

REPORT INFORMATION
  Report Type: Spontaneous
  Country: GR (occurrence: GR)
  Receive Date: 20130514
  Receipt Date: 20130514
  Transmission Date: 20140414
  Serious: Yes (Death)
  Sender: FDA-Public Use
  Company Number: GR-PFIZER INC-2013145175

PATIENT
  Age: 18 Month
  Sex: Male

DRUGS (8)
  1. LINEZOLID [Suspect]
     Dosage: 10 MG/KG, 3X/DAY
  2. RIFAMPICIN [Suspect]
     Dosage: 15 MG/KG, 1X/DAY
  3. LEVOFLOXACIN [Suspect]
     Dosage: 10 MG/KG, 2X/DAY
  4. COLISTIN [Suspect]
  5. ISONIAZID [Suspect]
     Dosage: 15 MG/KG, 1X/DAY
  6. ISONIAZID [Suspect]
     Dosage: 20 MG/KG, 1X/DAY
  7. CAPREOMYCIN [Suspect]
     Dosage: 30 MG/KG, 1X/DAY
  8. CYCLOSERINE [Suspect]
     Dosage: 12 MG/KG, 2X/DAY

REACTIONS (3)
  - Hepatic failure [Fatal]
  - Toxicity to various agents [None]
  - Treatment failure [None]
